FAERS Safety Report 13306388 (Version 2)
Quarter: 2017Q2

REPORT INFORMATION
  Report Type: Spontaneous
  Country: ES (occurrence: ES)
  Receive Date: 20170308
  Receipt Date: 20170403
  Transmission Date: 20170830
  Serious: Yes (Hospitalization, Other)
  Sender: FDA-Public Use
  Company Number: ES-GILEAD-2017-0260861

PATIENT
  Age: 62 Year
  Sex: Female
  Weight: 120 kg

DRUGS (5)
  1. ASPIRIN                            /00002701/ [Concomitant]
     Active Substance: ASPIRIN
  2. GENVOYA [Suspect]
     Active Substance: COBICISTAT\ELVITEGRAVIR\EMTRICITABINE\TENOFOVIR ALAFENAMIDE FUMARATE
     Indication: HIV INFECTION
     Dosage: UNK UNK, QD
     Route: 065
     Dates: start: 201701
  3. INSULIN [Concomitant]
     Active Substance: INSULIN NOS
  4. NITROGLYCERIN. [Concomitant]
     Active Substance: NITROGLYCERIN
  5. ATORVASTATIN [Concomitant]
     Active Substance: ATORVASTATIN

REACTIONS (5)
  - Blood creatinine increased [Unknown]
  - Myocardial ischaemia [Unknown]
  - Glomerular filtration rate decreased [Unknown]
  - Myocardial infarction [Recovered/Resolved]
  - Hypoglycaemia [Unknown]

NARRATIVE: CASE EVENT DATE: 20170301
